FAERS Safety Report 10213576 (Version 2)
Quarter: 2014Q4

REPORT INFORMATION
  Report Type: Spontaneous
  Country: JP (occurrence: JP)
  Receive Date: 20140603
  Receipt Date: 20141021
  Transmission Date: 20150528
  Serious: Yes (Hospitalization)
  Sender: FDA-Public Use
  Company Number: JP-RANBAXY-2014R1-81685

PATIENT
  Age: 83 Year
  Sex: Female
  Weight: 56 kg

DRUGS (1)
  1. ARICEPT [Suspect]
     Active Substance: DONEPEZIL HYDROCHLORIDE
     Indication: DEMENTIA ALZHEIMER^S TYPE
     Dosage: UNK
     Route: 065

REACTIONS (8)
  - Colitis [Unknown]
  - Coronary artery occlusion [None]
  - Electrocardiogram QT prolonged [Unknown]
  - Atrial fibrillation [None]
  - Seizure [Unknown]
  - Torsade de pointes [Recovered/Resolved]
  - Syncope [Unknown]
  - Blood potassium decreased [None]
